FAERS Safety Report 5466439-0 (Version None)
Quarter: 2007Q3

REPORT INFORMATION
  Report Type: 
  Country: None (occurrence: None)
  Receive Date: 20070820
  Receipt Date: 20070531
  Transmission Date: 20080115
  Serious: No
  Sender: FDA-Public Use
  Company Number: WAES 0706USA00150

PATIENT
  Age: 72 Year
  Sex: Female

DRUGS (11)
  1. JANUVIA [Suspect]
     Dosage: 100 MG/DAILY/PO
     Route: 048
     Dates: start: 20070524, end: 20070529
  2. CELLUVISC [Concomitant]
  3. EVISTA [Concomitant]
  4. LASIX [Concomitant]
  5. PLAVIX [Concomitant]
  6. RANITIDINE-BC [Concomitant]
  7. TEVETEN [Concomitant]
  8. TOPROL-XL [Concomitant]
  9. XALATAN [Concomitant]
  10. CLONIDINE [Concomitant]
  11. METFORMIN [Concomitant]

REACTIONS (1)
  - HYPOTENSION [None]
